FAERS Safety Report 4779775-8 (Version None)
Quarter: 2005Q3

REPORT INFORMATION
  Report Type: 
  Country: None (occurrence: None)
  Receive Date: 20050914
  Receipt Date: 20050706
  Transmission Date: 20060218
  Serious: Yes (Other)
  Sender: FDA-Public Use
  Company Number: 163-20785-05040178

PATIENT

DRUGS (2)
  1. THALOMID [Suspect]
     Indication: METASTATIC MALIGNANT MELANOMA
     Dosage: 200MG FOR 2WKS INCREASED BY 100MG AT 2WK INTERVALS UP TO 400MG, QD, ORAL
     Route: 048
     Dates: start: 20040630
  2. TEMOZOLOMIDE (TEMOZOLOMIDE) [Suspect]
     Indication: METASTATIC MALIGNANT MELANOMA
     Dosage: 75MG/M2 FOR 6 WEEKS, Q8WKS, QD, ORAL
     Route: 048
     Dates: start: 20040630

REACTIONS (3)
  - CONFUSIONAL STATE [None]
  - FATIGUE [None]
  - SPEECH DISORDER [None]
